FAERS Safety Report 5566371-8 (Version None)
Quarter: 2007Q4

REPORT INFORMATION
  Report Type: 
  Country: None (occurrence: None)
  Receive Date: 20071130
  Receipt Date: 20070831
  Transmission Date: 20080405
  Serious: No
  Sender: FDA-Public Use
  Company Number: US200709000206

PATIENT
  Age: 59 Year
  Sex: Female

DRUGS (5)
  1. BYETTA [Suspect]
     Indication: TYPE 2 DIABETES MELLITUS
     Dosage: 5 UG, 2/D, SUBCUTANEOUS, 5 UG, 4/D, SUBCUTANEOUS, 10 UG, 2/D, 5 UG, 4/D, SUBCUTANEOUS
     Route: 058
     Dates: start: 20070601, end: 20070701
  2. BYETTA [Suspect]
     Indication: TYPE 2 DIABETES MELLITUS
     Dosage: 5 UG, 2/D, SUBCUTANEOUS, 5 UG, 4/D, SUBCUTANEOUS, 10 UG, 2/D, 5 UG, 4/D, SUBCUTANEOUS
     Route: 058
     Dates: start: 20070701, end: 20070829
  3. BYETTA [Suspect]
     Indication: TYPE 2 DIABETES MELLITUS
     Dosage: 5 UG, 2/D, SUBCUTANEOUS, 5 UG, 4/D, SUBCUTANEOUS, 10 UG, 2/D, 5 UG, 4/D, SUBCUTANEOUS
     Route: 058
     Dates: start: 20070830, end: 20070830
  4. BYETTA [Suspect]
     Indication: TYPE 2 DIABETES MELLITUS
     Dosage: 5 UG, 2/D, SUBCUTANEOUS, 5 UG, 4/D, SUBCUTANEOUS, 10 UG, 2/D, 5 UG, 4/D, SUBCUTANEOUS
     Route: 058
     Dates: start: 20070831
  5. GLYBURIDE [Concomitant]

REACTIONS (2)
  - BLOOD GLUCOSE INCREASED [None]
  - DRUG INEFFECTIVE [None]
